FAERS Safety Report 8164077-2 (Version None)
Quarter: 2012Q1

REPORT INFORMATION
  Report Type: 
  Country: None (occurrence: None)
  Receive Date: 20120103
  Receipt Date: 20111003
  Transmission Date: 20120608
  Serious: No
  Sender: FDA-Public Use
  Company Number: AE-2011-001997

PATIENT
  Sex: Male

DRUGS (3)
  1. PEGINTERFERON (PEGINTERFERON ALFA-2A) [Concomitant]
  2. INCIVEK [Suspect]
  3. RIBAVIRIN [Concomitant]

REACTIONS (3)
  - GOUT [None]
  - DEHYDRATION [None]
  - ASTHENIA [None]
